FAERS Safety Report 6370937-5 (Version None)
Quarter: 2009Q3

REPORT INFORMATION
  Report Type: 
  Country: None (occurrence: None)
  Receive Date: 20090923
  Receipt Date: 20071113
  Transmission Date: 20100115
  Serious: No
  Sender: FDA-Public Use
  Company Number: US-ASTRAZENECA-2006UW23051

PATIENT
  Age: 4232 Day
  Sex: Male
  Weight: 178.7 kg

DRUGS (13)
  1. SEROQUEL [Suspect]
     Indication: DEPRESSION
     Route: 048
     Dates: start: 20000101, end: 20060101
  2. SEROQUEL [Suspect]
     Indication: SLEEP DISORDER
     Route: 048
     Dates: start: 20000101, end: 20060101
  3. SEROQUEL [Suspect]
     Route: 048
     Dates: start: 20020911
  4. SEROQUEL [Suspect]
     Route: 048
     Dates: start: 20020911
  5. TOPAMAX [Concomitant]
     Dosage: 25, 100 MG
     Route: 048
     Dates: start: 20020911
  6. ADDERALL 10 [Concomitant]
     Dosage: 10, 30 MG
     Route: 048
     Dates: start: 20020911
  7. IBUPROFEN [Concomitant]
     Route: 048
     Dates: start: 20021004
  8. AMBIEN [Concomitant]
     Route: 048
     Dates: start: 20010823
  9. IMIPRAMINE [Concomitant]
     Dosage: 25-50 MG
     Route: 048
     Dates: start: 20030731
  10. AUGMENTIN [Concomitant]
     Route: 048
     Dates: start: 20021023
  11. TRILEPTAL [Concomitant]
     Route: 048
     Dates: start: 20031106
  12. PROZAC [Concomitant]
     Route: 048
     Dates: start: 20060309
  13. RISPERDAL [Concomitant]
     Route: 048

REACTIONS (2)
  - HYPERGLYCAEMIA [None]
  - OBESITY [None]
